FAERS Safety Report 17548942 (Version 1)
Quarter: 2020Q1

REPORT INFORMATION
  Report Type: Spontaneous
  Country: US (occurrence: US)
  Receive Date: 20200317
  Receipt Date: 20200317
  Transmission Date: 20200409
  Serious: Yes (Hospitalization, Other)
  Sender: FDA-Public Use
  Company Number: US-EMCURE PHARMACEUTICALS LTD-2020-EPL-000253

PATIENT
  Age: 14 Year
  Sex: Male

DRUGS (4)
  1. FLUOXETINE [Suspect]
     Active Substance: FLUOXETINE HYDROCHLORIDE
     Indication: PRODUCT USED FOR UNKNOWN INDICATION
     Dosage: 60 MILLIGRAM, DAILY, STARTED 1 YEAR AGO
  2. CYPROHEPTADINE. [Suspect]
     Active Substance: CYPROHEPTADINE
     Indication: SEROTONIN SYNDROME
     Dosage: 4 MILLIGRAM
     Route: 048
  3. LISDEXAMFETAMINE [Suspect]
     Active Substance: LISDEXAMFETAMINE
     Indication: PRODUCT USED FOR UNKNOWN INDICATION
     Dosage: 60 MILLIGRAM, DAILY (STARTED 1 YEAR AGO)
  4. CYPROHEPTADINE. [Suspect]
     Active Substance: CYPROHEPTADINE
     Dosage: 2 MILLIGRAM, EVERY 2 HOURS, PRN

REACTIONS (3)
  - Somnolence [Recovering/Resolving]
  - Product dose omission [Unknown]
  - Serotonin syndrome [Recovering/Resolving]
